FAERS Safety Report 25986787 (Version 1)
Quarter: 2025Q4

REPORT INFORMATION
  Report Type: Spontaneous
  Country: TW (occurrence: TW)
  Receive Date: 20251102
  Receipt Date: 20251102
  Transmission Date: 20260117
  Serious: Yes (Death, Other)
  Sender: SANOFI AVENTIS
  Company Number: TW-DialogSolutions-SAAVPROD-PI835262-C1

PATIENT
  Age: 42 Year
  Sex: Female

DRUGS (8)
  1. LEFLUNOMIDE [Suspect]
     Active Substance: LEFLUNOMIDE
     Indication: Evidence based treatment
     Dosage: UNK
  2. DOCETAXEL [Suspect]
     Active Substance: DOCETAXEL
     Indication: Angiosarcoma
     Dosage: UNK
  3. CORTICOSTEROID NOS [Suspect]
     Active Substance: CORTICOSTEROID NOS
     Dosage: UNK
  4. DOXORUBICIN [Suspect]
     Active Substance: DOXORUBICIN
     Indication: Angiosarcoma
     Dosage: UNK
  5. IFOSFAMIDE [Suspect]
     Active Substance: IFOSFAMIDE
     Indication: Angiosarcoma
     Dosage: UNK
  6. CABOZANTINIB [Suspect]
     Active Substance: CABOZANTINIB
     Indication: Angiosarcoma
     Dosage: UNK
  7. NIVOLUMAB [Suspect]
     Active Substance: NIVOLUMAB
     Indication: Angiosarcoma
     Dosage: UNK
  8. GEMCITABINE [Suspect]
     Active Substance: GEMCITABINE
     Indication: Angiosarcoma
     Dosage: UNK

REACTIONS (5)
  - Respiratory failure [Fatal]
  - Pneumonia [Unknown]
  - Pancytopenia [Unknown]
  - Septic shock [Unknown]
  - Off label use [Unknown]
